FAERS Safety Report 15538309 (Version 1)
Quarter: 2018Q4

REPORT INFORMATION
  Report Type: Spontaneous
  Country: US (occurrence: US)
  Receive Date: 20181022
  Receipt Date: 20181022
  Transmission Date: 20190205
  Serious: Yes (Hospitalization, Other)
  Sender: FDA-Public Use
  Company Number: US-NAPPMUNDI-USA-2018-0145022

PATIENT
  Age: 41 Year
  Sex: Female

DRUGS (5)
  1. BUPRENORPHINE TRANSDERMAL PATCH (SIMILAR TO NDA 21-306) [Suspect]
     Active Substance: BUPRENORPHINE
     Indication: PAIN
     Dosage: 15 MCG/HR, WEEKLY
     Route: 062
     Dates: start: 2017
  2. TOPAMAX [Interacting]
     Active Substance: TOPIRAMATE
     Dosage: 100 MG, DAILY
     Route: 048
     Dates: start: 201810
  3. TOPAMAX [Interacting]
     Active Substance: TOPIRAMATE
     Indication: MIGRAINE
     Dosage: 125 MG, DAILY
     Route: 048
     Dates: start: 201802
  4. TOPAMAX [Interacting]
     Active Substance: TOPIRAMATE
     Dosage: 150 MG, DAILY
     Route: 048
     Dates: start: 201810, end: 201810
  5. BUPRENORPHINE TRANSDERMAL PATCH (SIMILAR TO NDA 21-306) [Interacting]
     Active Substance: BUPRENORPHINE
     Dosage: 20 MCG/HR, WEEKLY
     Route: 062
     Dates: start: 2018, end: 20181012

REACTIONS (19)
  - Hospitalisation [Recovered/Resolved]
  - Migraine [Unknown]
  - Depressed mood [Recovered/Resolved]
  - Road traffic accident [Recovered/Resolved]
  - Inappropriate schedule of product administration [Unknown]
  - Thinking abnormal [Recovered/Resolved]
  - Autoscopy [Unknown]
  - Anxiety [Recovered/Resolved]
  - Product adhesion issue [Unknown]
  - Memory impairment [Unknown]
  - Malaise [Not Recovered/Not Resolved]
  - Crying [Not Recovered/Not Resolved]
  - Weight decreased [Not Recovered/Not Resolved]
  - Hypophagia [Not Recovered/Not Resolved]
  - Suicidal ideation [Recovered/Resolved]
  - Drug withdrawal syndrome [Unknown]
  - Drug interaction [Unknown]
  - Palpitations [Not Recovered/Not Resolved]
  - Pain [Not Recovered/Not Resolved]

NARRATIVE: CASE EVENT DATE: 201802
